FAERS Safety Report 12555450 (Version 2)
Quarter: 2016Q3

REPORT INFORMATION
  Report Type: Report from Study
  Country: DE (occurrence: DE)
  Receive Date: 20160714
  Receipt Date: 20160901
  Transmission Date: 20161109
  Serious: Yes (Hospitalization)
  Sender: FDA-Public Use
  Company Number: DE-ROCHE-1785484

PATIENT
  Age: 68 Year
  Sex: Male
  Weight: 97 kg

DRUGS (10)
  1. PANTOZOL [Concomitant]
     Active Substance: PANTOPRAZOLE SODIUM
     Route: 048
  2. PANTHENOL [Concomitant]
     Active Substance: PANTHENOL
     Dosage: AS REQUIRED
     Route: 065
  3. CORNEREGEL [Concomitant]
     Active Substance: DEXPANTHENOL
     Route: 065
  4. ALLOPURINOL. [Concomitant]
     Active Substance: ALLOPURINOL
     Route: 048
  5. AMLODIPIN [Concomitant]
     Active Substance: AMLODIPINE BESYLATE
     Route: 048
  6. TRILEPTAL [Concomitant]
     Active Substance: OXCARBAZEPINE
     Route: 048
  7. RITUXIMAB [Suspect]
     Active Substance: RITUXIMAB
     Indication: DIFFUSE LARGE B-CELL LYMPHOMA
     Dosage: 22/JUN/2016:LAST DOSE OF RITUXIMAB
     Route: 058
     Dates: start: 20160226
  8. GABAPENTIN. [Concomitant]
     Active Substance: GABAPENTIN
     Route: 048
  9. CLEXANE [Concomitant]
     Active Substance: ENOXAPARIN SODIUM
     Route: 058
  10. NOVALGIN [Concomitant]
     Active Substance: METAMIZOLE SODIUM
     Route: 048

REACTIONS (3)
  - Inflammation [Unknown]
  - Metastases to meninges [Unknown]
  - Paraparesis [Unknown]

NARRATIVE: CASE EVENT DATE: 20160627
